FAERS Safety Report 7418916-0 (Version None)
Quarter: 2011Q2

REPORT INFORMATION
  Report Type: 
  Country: None (occurrence: None)
  Receive Date: 20110415
  Receipt Date: 20110404
  Transmission Date: 20111010
  Serious: Yes (Other)
  Sender: FDA-Public Use
  Company Number: CA-ELI_LILLY_AND_COMPANY-CA201104000815

PATIENT
  Sex: Male
  Weight: 88.5 kg

DRUGS (13)
  1. IMOVANE [Concomitant]
  2. ZYPREXA [Suspect]
     Indication: SCHIZOPHRENIA
     Dosage: 10 MG, EACH EVENING
     Route: 048
     Dates: start: 19970523
  3. KEMADRIN [Concomitant]
     Dosage: UNK
  4. ELAVIL [Concomitant]
     Dosage: UNK
  5. ATIVAN [Concomitant]
     Dosage: UNK
  6. ZYPREXA [Suspect]
     Dosage: 15 MG, EACH EVENING
     Route: 048
  7. ZOLOFT [Concomitant]
     Dosage: UNK
     Route: 048
  8. ZYPREXA [Suspect]
     Dosage: 20 MG, EACH EVENING
     Route: 048
  9. ZYPREXA [Suspect]
     Dosage: 25 MG, EACH EVENING
     Route: 048
  10. LOXAPINE [Concomitant]
     Dosage: UNK
  11. RISPERDAL [Concomitant]
     Dosage: UNK
  12. ZYPREXA [Suspect]
     Dosage: 30 MG, EACH EVENING
     Route: 048
  13. EFFEXOR [Concomitant]
     Dosage: UNK

REACTIONS (16)
  - HEPATITIS C [None]
  - OVERDOSE [None]
  - FATIGUE [None]
  - MICROCYTIC ANAEMIA [None]
  - ASTHENIA [None]
  - ASPARTATE AMINOTRANSFERASE INCREASED [None]
  - HYPERTENSION [None]
  - OEDEMA PERIPHERAL [None]
  - MONONEUROPATHY MULTIPLEX [None]
  - TYPE 2 DIABETES MELLITUS [None]
  - DYSLIPIDAEMIA [None]
  - PAIN [None]
  - GAMMA-GLUTAMYLTRANSFERASE INCREASED [None]
  - WEIGHT INCREASED [None]
  - ERECTILE DYSFUNCTION [None]
  - ALANINE AMINOTRANSFERASE INCREASED [None]
